FAERS Safety Report 8642337 (Version 4)
Quarter: 2012Q4

REPORT INFORMATION
  Report Type: 
  Country: US (occurrence: US)
  Receive Date: 20120628
  Receipt Date: 20120921
  Transmission Date: 20130627
  Serious: Yes (Death, Hospitalization, Other)
  Sender: FDA-Public Use
  Company Number: US-BAXTER-2012BAX009009

PATIENT
  Age: 81 Year
  Sex: Male

DRUGS (4)
  1. DIANEAL LOW CALCIUM [Suspect]
     Indication: AUTOMATED PERITONEAL DIALYSIS
     Route: 033
     Dates: end: 20120701
  2. DIANEAL LOW CALCIUM (ULTRABAG) [Suspect]
     Indication: CONTINUOUS AMBULATORY PERITONEAL DIALYSIS
     Route: 033
     Dates: start: 20101025
  3. EXTRANEAL [Suspect]
     Indication: CONTINUOUS AMBULATORY PERITONEAL DIALYSIS
     Route: 033
     Dates: start: 20101025
  4. EXTRANEAL [Suspect]
     Indication: AUTOMATED PERITONEAL DIALYSIS
     Route: 033
     Dates: end: 20120701

REACTIONS (8)
  - Failure to thrive [Fatal]
  - Syncope [Not Recovered/Not Resolved]
  - Autonomic failure syndrome [Not Recovered/Not Resolved]
  - Urinary tract infection [Unknown]
  - Orthostatic hypotension [Not Recovered/Not Resolved]
  - Fungal peritonitis [Recovering/Resolving]
  - Abdominal pain upper [Recovering/Resolving]
  - Peritoneal dialysis complication [Unknown]
